FAERS Safety Report 17043632 (Version 1)
Quarter: 2019Q4

REPORT INFORMATION
  Report Type: Spontaneous
  Country: US (occurrence: US)
  Receive Date: 20191017
  Receipt Date: 20191017
  Transmission Date: 20200122
  Serious: No
  Sender: FDA-Public Use
  Company Number: None

PATIENT
  Age: 38 Year
  Sex: Female
  Weight: 143.7 kg

DRUGS (2)
  1. INSULIN LISPRO [Suspect]
     Active Substance: INSULIN LISPRO
  2. ADMELOG [Suspect]
     Active Substance: INSULIN LISPRO
     Indication: TYPE 1 DIABETES MELLITUS
     Dosage: INFUSION THROUGH PUMP CONTINOUS SUB Q CANNULA FROM PUMP
     Route: 058
     Dates: start: 20190929, end: 20191008

REACTIONS (3)
  - Hyperglycaemia [None]
  - Infusion site rash [None]
  - Palpitations [None]

NARRATIVE: CASE EVENT DATE: 20190909
